FAERS Safety Report 13844225 (Version 2)
Quarter: 2017Q3

REPORT INFORMATION
  Report Type: Spontaneous
  Country: GR (occurrence: GR)
  Receive Date: 20170808
  Receipt Date: 20170809
  Transmission Date: 20171127
  Serious: Yes (Other)
  Sender: FDA-Public Use
  Company Number: GR-PFIZER INC-2017337238

PATIENT
  Age: 87 Year
  Sex: Male
  Weight: 138 kg

DRUGS (16)
  1. PRAVACHOL [Suspect]
     Active Substance: PRAVASTATIN SODIUM
     Indication: HYPERLIPIDAEMIA
     Dosage: 20 MG, 1X/DAY
  2. SOLOSA [Concomitant]
     Active Substance: GLIMEPIRIDE
     Indication: DIABETES MELLITUS
     Dosage: MORNING DOSE  4 MG
  3. SOLOSA [Concomitant]
     Active Substance: GLIMEPIRIDE
     Dosage: 0.5 DF, 1X/DAY (EVENING DOSE)
  4. SEEBRI BREEZHALER [Concomitant]
     Active Substance: GLYCOPYRROLATE
     Indication: CHRONIC RESPIRATORY DISEASE
     Dosage: 1 DF, 2X/DAY
  5. XOTERNA [Concomitant]
     Indication: CHRONIC RESPIRATORY DISEASE
     Dosage: 1 DF, 1X/DAY
  6. COAPROVEL [Suspect]
     Active Substance: HYDROCHLOROTHIAZIDE\IRBESARTAN
     Indication: BLOOD PRESSURE ABNORMAL
     Dosage: 300 MG/25 MG, 1X/DAY
     Route: 048
  7. NOOTROP [Concomitant]
     Active Substance: PIRACETAM
     Dosage: 1200 MG, 2X/DAY
  8. BRETARIS GENUAIR [Concomitant]
     Active Substance: ACLIDINIUM BROMIDE
     Indication: CHRONIC RESPIRATORY DISEASE
     Dosage: 1 DF, 1X/DAY
  9. LANTUS [Concomitant]
     Active Substance: INSULIN GLARGINE
     Indication: DIABETES MELLITUS
     Dosage: 60 IU, UNK
  10. FOSTER NEXTHALER [Concomitant]
     Indication: CHRONIC RESPIRATORY DISEASE
     Dosage: 4 DF, 2X/DAY
  11. SALOSPIR [Concomitant]
     Active Substance: ASPIRIN
     Dosage: 100 MG, 1X/DAY
  12. NEURONTIN [Suspect]
     Active Substance: GABAPENTIN
     Dosage: 400 MG, DAILY
  13. BIVOL [Suspect]
     Active Substance: NEBIVOLOL HYDROCHLORIDE
     Indication: BLOOD PRESSURE ABNORMAL
     Dosage: 5 MG, 2X/DAY
  14. VESOMNI [Concomitant]
     Active Substance: SOLIFENACIN\TAMSULOSIN
     Indication: PROSTATE CANCER
     Dosage: 1 DF, 1X/DAY
  15. GLUCOPHAGE [Suspect]
     Active Substance: METFORMIN HYDROCHLORIDE
     Indication: DIABETES MELLITUS
     Dosage: 1000 MG, 2X/DAY
  16. LAPRAZOL [Concomitant]
     Active Substance: LANSOPRAZOLE
     Dosage: 1 DF, 1X/DAY

REACTIONS (4)
  - Dyspnoea [Not Recovered/Not Resolved]
  - Fatigue [Not Recovered/Not Resolved]
  - Somnolence [Not Recovered/Not Resolved]
  - Abnormal sleep-related event [Not Recovered/Not Resolved]

NARRATIVE: CASE EVENT DATE: 2007
